FAERS Safety Report 4359796-X (Version None)
Quarter: 2004Q2

REPORT INFORMATION
  Report Type: 
  Country: None (occurrence: None)
  Receive Date: 20040518
  Receipt Date: 20040506
  Transmission Date: 20050107
  Serious: Yes (Hospitalization)
  Sender: FDA-Public Use
  Company Number: JP-GLAXOSMITHKLINE-B0332080A

PATIENT
  Age: 30 Year
  Sex: Male

DRUGS (2)
  1. ZEFIX [Suspect]
     Indication: ANTIVIRAL PROPHYLAXIS
     Dosage: 100MG PER DAY
     Route: 048
     Dates: start: 20031002, end: 20040430
  2. TAKEPRON [Concomitant]
     Route: 048

REACTIONS (1)
  - GRANULOCYTOPENIA [None]
